FAERS Safety Report 6620006-1 (Version None)
Quarter: 2010Q1

REPORT INFORMATION
  Report Type: 
  Country: None (occurrence: None)
  Receive Date: 20100309
  Receipt Date: 20100225
  Transmission Date: 20100710
  Serious: Yes (Death, Other)
  Sender: FDA-Public Use
  Company Number: IL-GENENTECH-298716

PATIENT
  Age: 60 Year
  Sex: Male

DRUGS (2)
  1. XOLAIR [Suspect]
     Indication: ASTHMA
     Dosage: 300 MG, Q2M
  2. XOLAIR [Suspect]
     Dosage: 300 MG, Q2W
     Dates: start: 20100207

REACTIONS (2)
  - DEATH [None]
  - DYSPNOEA [None]
